FAERS Safety Report 12529956 (Version 1)
Quarter: 2016Q3

REPORT INFORMATION
  Report Type: Spontaneous
  Country: US (occurrence: None)
  Receive Date: 20160705
  Receipt Date: 20160705
  Transmission Date: 20161109
  Serious: Yes (Hospitalization)
  Sender: FDA-Public Use
  Company Number: None

PATIENT
  Age: 51 Year
  Sex: Female

DRUGS (2)
  1. VANCOMYCIN 1 GRAM FRESENIUS KABI USA [Suspect]
     Active Substance: VANCOMYCIN
     Indication: INFECTION
     Route: 042
     Dates: start: 20160601, end: 20160606
  2. ERTAPENEM 100MG MERCK SHARP + DOHME [Suspect]
     Active Substance: ERTAPENEM
     Indication: INFECTION
     Dosage: EVERY 24 HOURS 1000 MG IV
     Route: 042
     Dates: start: 20160601, end: 20160606

REACTIONS (1)
  - Urticaria [None]

NARRATIVE: CASE EVENT DATE: 20160606
